FAERS Safety Report 7511240-7 (Version None)
Quarter: 2011Q2

REPORT INFORMATION
  Report Type: 
  Country: None (occurrence: None)
  Receive Date: 20110531
  Receipt Date: 20110525
  Transmission Date: 20111010
  Serious: Yes (Death, Other)
  Sender: FDA-Public Use
  Company Number: PHHY2011BR45237

PATIENT
  Age: 70 Year
  Sex: Male

DRUGS (1)
  1. EXELON [Suspect]
     Indication: DEMENTIA ALZHEIMER'S TYPE
     Dosage: 18MG/10CM2 ONE PATCH PER DAY
     Route: 062
     Dates: start: 20100901

REACTIONS (2)
  - EMPHYSEMA [None]
  - CARDIAC FAILURE [None]
